FAERS Safety Report 8158888-7 (Version None)
Quarter: 2012Q1

REPORT INFORMATION
  Report Type: 
  Country: None (occurrence: None)
  Receive Date: 20120217
  Receipt Date: 20120209
  Transmission Date: 20120608
  Serious: Yes (Hospitalization, Other)
  Sender: FDA-Public Use
  Company Number: USA/USA/12/0023019

PATIENT
  Age: 32 Year

DRUGS (1)
  1. CETIRIZINE HCL [Suspect]
     Indication: MASTOCYTOSIS
     Dosage: 10 MG, 1 IN 1 D,

REACTIONS (7)
  - THROAT TIGHTNESS [None]
  - OXYGEN SATURATION DECREASED [None]
  - MATERNAL EXPOSURE DURING PREGNANCY [None]
  - DYSPNOEA [None]
  - BLOOD PRESSURE SYSTOLIC DECREASED [None]
  - INFLUENZA LIKE ILLNESS [None]
  - CAESAREAN SECTION [None]
